FAERS Safety Report 6137991-7 (Version None)
Quarter: 2009Q1

REPORT INFORMATION
  Report Type: 
  Country: None (occurrence: None)
  Receive Date: 20090327
  Receipt Date: 20090308
  Transmission Date: 20090719
  Serious: Yes (Hospitalization, Other)
  Sender: FDA-Public Use
  Company Number: 2005S1006087

PATIENT
  Age: 73 Year
  Sex: Female
  Weight: 53.0709 kg

DRUGS (8)
  1. PHOSPHOSODA GINGER LEMON [Suspect]
     Indication: COLONOSCOPY
     Dosage: ; PO
     Route: 048
     Dates: start: 20050309, end: 20050310
  2. POTASSIUM CHLORIDE [Concomitant]
  3. DIOVAN HCT [Concomitant]
  4. METOPROLOL [Concomitant]
  5. DYNACIRC [Concomitant]
  6. PROTONIX /01263201/ [Concomitant]
  7. METAMUCIL /00029101/ [Concomitant]
  8. AMBIEN [Concomitant]

REACTIONS (11)
  - ABDOMINAL DISCOMFORT [None]
  - ANAEMIA [None]
  - ANXIETY [None]
  - CHILLS [None]
  - DECREASED APPETITE [None]
  - DIVERTICULUM INTESTINAL [None]
  - HYPOMAGNESAEMIA [None]
  - NEPHROCALCINOSIS [None]
  - RENAL FAILURE ACUTE [None]
  - RENAL FAILURE CHRONIC [None]
  - WEIGHT DECREASED [None]
